FAERS Safety Report 8784787 (Version 4)
Quarter: 2013Q1

REPORT INFORMATION
  Report Type: Spontaneous
  Country: US (occurrence: US)
  Receive Date: 20120914
  Receipt Date: 20130321
  Transmission Date: 20140127
  Serious: Yes (Hospitalization, Disabling, Other)
  Sender: FDA-Public Use
  Company Number: US-PFIZER INC-2012226603

PATIENT
  Age: 49 Year
  Sex: Female
  Weight: 83.45 kg

DRUGS (4)
  1. LYRICA [Suspect]
     Indication: HYPOAESTHESIA
     Dosage: 75 MG, 2X/DAY
     Route: 048
     Dates: start: 201203
  2. LYRICA [Suspect]
     Indication: HYPOAESTHESIA
     Dosage: 150 MG, 2X/DAY
     Route: 048
     Dates: start: 2012
  3. LYRICA [Suspect]
     Indication: PARAESTHESIA
  4. ASACOL [Concomitant]
     Indication: CROHN^S DISEASE
     Dosage: 800 MG, 4X/DAY

REACTIONS (13)
  - Fall [Unknown]
  - Myelopathy [Unknown]
  - Cardiac disorder [Unknown]
  - Heart rate decreased [Unknown]
  - Ill-defined disorder [Not Recovered/Not Resolved]
  - Spinal disorder [Not Recovered/Not Resolved]
  - Nerve compression [Not Recovered/Not Resolved]
  - Inflammation [Not Recovered/Not Resolved]
  - Drug effect incomplete [Unknown]
  - Hypoaesthesia [Not Recovered/Not Resolved]
  - Hypokinesia [Not Recovered/Not Resolved]
  - Gait disturbance [Not Recovered/Not Resolved]
  - Blood disorder [Not Recovered/Not Resolved]
